FAERS Safety Report 9333103 (Version 1)
Quarter: 2013Q2

REPORT INFORMATION
  Report Type: Spontaneous
  Country: GB (occurrence: GB)
  Receive Date: 20130606
  Receipt Date: 20130606
  Transmission Date: 20140414
  Serious: Yes (Hospitalization, Other)
  Sender: FDA-Public Use
  Company Number: GB-ROXANE LABORATORIES, INC.-2013-RO-00875RO

PATIENT
  Age: 24 Year
  Sex: Male

DRUGS (1)
  1. METHADONE [Suspect]
     Indication: DRUG DEPENDENCE

REACTIONS (6)
  - Staphylococcus test positive [Recovered/Resolved]
  - Septic embolus [Recovered/Resolved]
  - Endocarditis [Recovered/Resolved]
  - Vasculitis [Recovered/Resolved]
  - Empyema [Recovered/Resolved]
  - Tricuspid valve incompetence [Unknown]
